FAERS Safety Report 8240050-0 (Version None)
Quarter: 2012Q1

REPORT INFORMATION
  Report Type: 
  Country: None (occurrence: None)
  Receive Date: 20120328
  Receipt Date: 20120326
  Transmission Date: 20120608
  Serious: Yes (Hospitalization)
  Sender: FDA-Public Use
  Company Number: JP-B.I. PHARMACEUTICALS,INC./RIDGEFIELD-2012-BP-05747NB

PATIENT
  Age: 80 Year
  Sex: Female

DRUGS (6)
  1. CEREKINON [Concomitant]
     Dosage: 600 MG
     Route: 065
  2. DIOVAN [Concomitant]
     Indication: HYPERTENSION
     Dosage: 80 MG
     Route: 065
  3. ZOLPIDEM [Concomitant]
     Indication: INSOMNIA
     Dosage: 10 MG
     Route: 065
  4. PRADAXA [Suspect]
     Dosage: 220 MG
     Route: 065
     Dates: start: 20110817
  5. PRADAXA [Suspect]
     Indication: ATRIAL FIBRILLATION
     Dosage: 300 MG
     Route: 065
     Dates: start: 20110621, end: 20110816
  6. CEFAZOLIN SODIUM [Concomitant]
     Dosage: 3 ANZ
     Route: 065

REACTIONS (3)
  - HEMIPARESIS [None]
  - APHASIA [None]
  - CEREBRAL INFARCTION [None]
